FAERS Safety Report 10167797 (Version 1)
Quarter: 2014Q2

REPORT INFORMATION
  Report Type: Spontaneous
  Country: US (occurrence: US)
  Receive Date: 20140512
  Receipt Date: 20140512
  Transmission Date: 20141212
  Serious: Yes (Other)
  Sender: FDA-Public Use
  Company Number: 2014SP001417

PATIENT
  Sex: Female

DRUGS (2)
  1. LATUDA [Suspect]
     Route: 048
  2. LATUDA [Suspect]
     Route: 048
     Dates: start: 201403

REACTIONS (2)
  - Chromaturia [Unknown]
  - Hyperglycaemia [Unknown]
